FAERS Safety Report 7953673-0 (Version None)
Quarter: 2011Q4

REPORT INFORMATION
  Report Type: 
  Country: None (occurrence: None)
  Receive Date: 20111202
  Receipt Date: 20111123
  Transmission Date: 20120403
  Serious: Yes (Hospitalization)
  Sender: FDA-Public Use
  Company Number: US-SP-2011-07510

PATIENT
  Sex: Female

DRUGS (5)
  1. TENORMIN [Concomitant]
     Dosage: DAILY
     Route: 048
  2. PROCARDIA XL [Concomitant]
     Dosage: DAILY
     Route: 048
  3. ASPIRIN [Concomitant]
     Dosage: DAILY
     Route: 048
  4. SIMVASTATIN [Concomitant]
  5. THERACYS [Suspect]
     Indication: BLADDER CANCER
     Route: 043
     Dates: start: 20100623, end: 20100623

REACTIONS (10)
  - ATAXIA [None]
  - CONFUSIONAL STATE [None]
  - URINARY TRACT INFECTION ENTEROCOCCAL [None]
  - ASTHENIA [None]
  - SEPSIS [None]
  - METABOLIC ENCEPHALOPATHY [None]
  - DEHYDRATION [None]
  - BODY TEMPERATURE INCREASED [None]
  - VOMITING [None]
  - INCORRECT DOSE ADMINISTERED [None]
